FAERS Safety Report 18582193 (Version 1)
Quarter: 2020Q4

REPORT INFORMATION
  Report Type: Spontaneous
  Country: US (occurrence: US)
  Receive Date: 20201204
  Receipt Date: 20201204
  Transmission Date: 20210114
  Serious: Yes (Other)
  Sender: FDA-Public Use
  Company Number: None

PATIENT
  Sex: Female

DRUGS (20)
  1. TRAMADOL. [Concomitant]
     Active Substance: TRAMADOL
  2. ENBREL [Suspect]
     Active Substance: ETANERCEPT
     Indication: RHEUMATOID ARTHRITIS
     Dosage: ?          OTHER FREQUENCY:EVERY WEEK;?
     Route: 058
     Dates: start: 20160721
  3. HYDROCODONE [Concomitant]
     Active Substance: HYDROCODONE
  4. MULTIVITAMIN [Concomitant]
     Active Substance: VITAMINS
  5. SULFASALAZINE DELAYED-RELEASE [Concomitant]
     Active Substance: SULFASALAZINE
  6. ELMIRON [Concomitant]
     Active Substance: PENTOSAN POLYSULFATE SODIUM
  7. VITAMIN D [Concomitant]
     Active Substance: VITAMIN D NOS
  8. LEUCOVOR [Concomitant]
  9. FOLIC ACID. [Concomitant]
     Active Substance: FOLIC ACID
  10. MELATONIN [Concomitant]
     Active Substance: MELATONIN
  11. SYNTHROID [Concomitant]
     Active Substance: LEVOTHYROXINE SODIUM
  12. VITAMIN E [Concomitant]
     Active Substance: .ALPHA.-TOCOPHEROL
  13. OMEPRAZOLE. [Concomitant]
     Active Substance: OMEPRAZOLE
  14. XANAX [Concomitant]
     Active Substance: ALPRAZOLAM
  15. PROZAC [Concomitant]
     Active Substance: FLUOXETINE HYDROCHLORIDE
  16. PLAQUENIL [Concomitant]
     Active Substance: HYDROXYCHLOROQUINE SULFATE
  17. ASMANEX [Concomitant]
     Active Substance: MOMETASONE FUROATE
  18. MACROBID [Concomitant]
     Active Substance: NITROFURANTOIN\NITROFURANTOIN MONOHYDRATE
  19. PREDNISONE. [Concomitant]
     Active Substance: PREDNISONE
  20. FLUCONAZOLE. [Concomitant]
     Active Substance: FLUCONAZOLE

REACTIONS (1)
  - Colon cancer [None]
